FAERS Safety Report 15601144 (Version 1)
Quarter: 2018Q4

REPORT INFORMATION
  Report Type: Spontaneous
  Country: CR (occurrence: CR)
  Receive Date: 20181109
  Receipt Date: 20181109
  Transmission Date: 20190205
  Serious: Yes (Other)
  Sender: FDA-Public Use
  Company Number: CR-ROCHE-2210460

PATIENT

DRUGS (2)
  1. VALIXA [Suspect]
     Active Substance: VALGANCICLOVIR
     Indication: PROPHYLAXIS
     Route: 065
  2. CYMEVENE [Concomitant]
     Active Substance: GANCICLOVIR
     Route: 042

REACTIONS (3)
  - Viral load increased [Unknown]
  - Transplant rejection [Unknown]
  - Hepatic enzyme abnormal [Unknown]
